FAERS Safety Report 11272398 (Version 1)
Quarter: 2015Q3

REPORT INFORMATION
  Report Type: Spontaneous
  Country: US (occurrence: None)
  Receive Date: 20150713
  Receipt Date: 20150713
  Transmission Date: 20151125
  Serious: Yes (Life-Threatening)
  Sender: FDA-Public Use
  Company Number: None

PATIENT
  Age: 51 Year
  Sex: Male
  Weight: 74.84 kg

DRUGS (2)
  1. ALEVE [Suspect]
     Active Substance: NAPROXEN SODIUM
     Indication: MUSCULOSKELETAL PAIN
     Dates: start: 20150619, end: 20150619
  2. CPAC [Concomitant]

REACTIONS (6)
  - Anaphylactic reaction [None]
  - Throat tightness [None]
  - Syncope [None]
  - Blood pressure immeasurable [None]
  - Myocardial infarction [None]
  - Pruritus [None]

NARRATIVE: CASE EVENT DATE: 20150619
